FAERS Safety Report 16689717 (Version 1)
Quarter: 2019Q3

REPORT INFORMATION
  Report Type: Spontaneous
  Country: CH (occurrence: CH)
  Receive Date: 20190809
  Receipt Date: 20190809
  Transmission Date: 20191004
  Serious: Yes (Other)
  Sender: FDA-Public Use
  Company Number: CH-009507513-1908CHE003225

PATIENT
  Age: 0 Year
  Sex: Male
  Weight: 4.53 kg

DRUGS (3)
  1. INSULIN [Concomitant]
     Active Substance: INSULIN NOS
     Indication: TYPE 1 DIABETES MELLITUS
     Dosage: 14 UI/J
     Route: 064
  2. TRISEQUENS (ESTRADIOL (+) ESTRIOL (+) NORETHINDRONE ACETATE) [Suspect]
     Active Substance: ESTRADIOL\ESTRIOL\NORETHINDRONE ACETATE
     Indication: MENOPAUSAL SYMPTOMS
     Dosage: 1 DOSAGE FORM
     Route: 064
  3. JANUMET [Suspect]
     Active Substance: METFORMIN HYDROCHLORIDE\SITAGLIPTIN PHOSPHATE
     Indication: TYPE 1 DIABETES MELLITUS
     Dosage: 50 MG SITAGLIPTINE/1000 MG METFORMINE
     Route: 064
     Dates: end: 20181218

REACTIONS (2)
  - Macrosomia [Recovered/Resolved]
  - Exposure during pregnancy [Recovered/Resolved]

NARRATIVE: CASE EVENT DATE: 20181018
